FAERS Safety Report 10993806 (Version 1)
Quarter: 2015Q2

REPORT INFORMATION
  Report Type: Spontaneous
  Country: IT (occurrence: None)
  Receive Date: 20150403
  Receipt Date: 20150403
  Transmission Date: 20150821
  Serious: Yes (Hospitalization)
  Sender: FDA-Public Use
  Company Number: 2015-000633

PATIENT
  Age: 66 Year
  Sex: Female

DRUGS (1)
  1. RISEDRONATE (RISEDRONATE SODIUM) UNKNOWN, UNKUNK [Suspect]
     Active Substance: RISEDRONATE SODIUM
     Indication: OSTEOPOROSIS
     Route: 048
     Dates: start: 20111101, end: 20140923

REACTIONS (2)
  - Osteitis [None]
  - Osteonecrosis [None]

NARRATIVE: CASE EVENT DATE: 20141001
